FAERS Safety Report 9632214 (Version 2)
Quarter: 2013Q4

REPORT INFORMATION
  Report Type: Spontaneous
  Country: FR (occurrence: None)
  Receive Date: 20131016
  Receipt Date: 20131029
  Transmission Date: 20140711
  Serious: Yes (Life-Threatening, Hospitalization, Other)
  Sender: FDA-Public Use
  Company Number: DSM-2013-00924

PATIENT
  Age: 70 Year
  Sex: Female
  Weight: 86 kg

DRUGS (1)
  1. OLMESARTAN [Suspect]
     Indication: HYPERTENSION
     Route: 048
     Dates: start: 20110530, end: 20130711

REACTIONS (3)
  - Diarrhoea [None]
  - Weight decreased [None]
  - Renal failure [None]
